FAERS Safety Report 9697002 (Version 2)
Quarter: 2014Q1

REPORT INFORMATION
  Report Type: Spontaneous
  Country: US (occurrence: US)
  Receive Date: 20131119
  Receipt Date: 20140219
  Transmission Date: 20141002
  Serious: Yes (Other)
  Sender: FDA-Public Use
  Company Number: US-SA-2013SA114992

PATIENT
  Age: 58 Year
  Sex: Female
  Weight: 88.45 kg

DRUGS (2)
  1. AUVI-Q [Suspect]
     Indication: HYPERSENSITIVITY
     Dosage: AUTO INJECTOR
     Route: 065
     Dates: start: 20131103
  2. AUVI-Q [Suspect]
     Indication: ALLERGY TO ARTHROPOD BITE
     Dosage: AUTO INJECTOR
     Route: 065
     Dates: start: 20131103

REACTIONS (3)
  - Panic attack [Unknown]
  - Anxiety [Unknown]
  - Wrong drug administered [Unknown]
